FAERS Safety Report 7457134-7 (Version None)
Quarter: 2011Q1

REPORT INFORMATION
  Report Type: 
  Country: None (occurrence: None)
  Receive Date: 20110302
  Receipt Date: 20101210
  Transmission Date: 20110831
  Serious: No
  Sender: FDA-Public Use
  Company Number: 023660

PATIENT
  Sex: Female

DRUGS (1)
  1. CIMZIA [Suspect]
     Indication: CROHN'S DISEASE
     Dosage: (EVERY 2 WEEKS SUBCUTANEOUS), (MONTHLY DOSE SUBCUTANEOUS)
     Route: 058
     Dates: start: 20100907

REACTIONS (6)
  - BONE PAIN [None]
  - HYPOAESTHESIA [None]
  - MIGRAINE [None]
  - SINUS HEADACHE [None]
  - INJECTION SITE PAIN [None]
  - HYPOAESTHESIA ORAL [None]
